FAERS Safety Report 22193585 (Version 1)
Quarter: 2023Q2

REPORT INFORMATION
  Report Type: Spontaneous
  Country: CN (occurrence: CN)
  Receive Date: 20230410
  Receipt Date: 20230410
  Transmission Date: 20230721
  Serious: Yes (Life-Threatening, Hospitalization, Other)
  Sender: FDA-Public Use
  Company Number: CN-ELI_LILLY_AND_COMPANY-CN202304003331

PATIENT
  Age: 22 Year
  Sex: Female
  Weight: 42.5 kg

DRUGS (3)
  1. DULOXETINE HYDROCHLORIDE [Suspect]
     Active Substance: DULOXETINE HYDROCHLORIDE
     Indication: Completed suicide
     Dosage: 56 DOSAGE FORM, DAILY
     Route: 048
     Dates: start: 20230208, end: 20230208
  2. QUETIAPINE FUMARATE [Suspect]
     Active Substance: QUETIAPINE FUMARATE
     Indication: Completed suicide
     Dosage: 80 DOSAGE FORM, DAILY
     Route: 048
     Dates: start: 20230208, end: 20230208
  3. LAMOTRIGINE [Suspect]
     Active Substance: LAMOTRIGINE
     Indication: Completed suicide
     Dosage: 60 DOSAGE FORM, DAILY
     Route: 048
     Dates: start: 20230208, end: 20230208

REACTIONS (2)
  - Cardiac arrest [Recovering/Resolving]
  - Drug abuse [Unknown]

NARRATIVE: CASE EVENT DATE: 20230208
